FAERS Safety Report 22153525 (Version 1)
Quarter: 2023Q1

REPORT INFORMATION
  Report Type: Spontaneous
  Country: US (occurrence: None)
  Receive Date: 20230330
  Receipt Date: 20230330
  Transmission Date: 20230418
  Serious: No
  Sender: FDA-Public Use
  Company Number: 2023A061987

PATIENT
  Age: 66 Year
  Sex: Female

DRUGS (1)
  1. SAPHNELO [Suspect]
     Active Substance: ANIFROLUMAB-FNIA
     Route: 058

REACTIONS (3)
  - Dyspnoea [Unknown]
  - Wheezing [Unknown]
  - Hypersensitivity [Unknown]
